FAERS Safety Report 5197137-9 (Version None)
Quarter: 2007Q1

REPORT INFORMATION
  Report Type: 
  Country: None (occurrence: None)
  Receive Date: 20070103
  Receipt Date: 20061222
  Transmission Date: 20070707
  Serious: Yes (Life-Threatening)
  Sender: FDA-Public Use
  Company Number: PL-GLAXOSMITHKLINE-B0432111A

PATIENT
  Age: 70 Year
  Sex: Female
  Weight: 75 kg

DRUGS (10)
  1. ZINACEF [Suspect]
     Dosage: 1.5G TWICE PER DAY
     Route: 042
     Dates: start: 20060622, end: 20060626
  2. HYDROCORTISONE [Suspect]
     Indication: CHRONIC OBSTRUCTIVE PULMONARY DISEASE
     Dosage: 300MG PER DAY
     Route: 042
     Dates: start: 20060622, end: 20060626
  3. AMINOPHYLLIN [Concomitant]
     Indication: CHRONIC OBSTRUCTIVE PULMONARY DISEASE
     Dosage: 50MG PER DAY
     Route: 042
     Dates: start: 20060622, end: 20060626
  4. VENTOLIN [Concomitant]
     Indication: CHRONIC OBSTRUCTIVE PULMONARY DISEASE
     Dosage: 4.5MG PER DAY
     Route: 055
     Dates: start: 20060622, end: 20060704
  5. BROMHEXIN HYDROCHLORIDE [Concomitant]
     Indication: CHRONIC OBSTRUCTIVE PULMONARY DISEASE
     Dosage: 24MG PER DAY
     Route: 048
     Dates: start: 20060622, end: 20060704
  6. PRESTARIUM [Concomitant]
     Indication: HYPERTENSION
     Dosage: 5MG PER DAY
     Route: 048
     Dates: start: 20060622, end: 20060704
  7. FUROSEMIDE [Concomitant]
     Indication: HYPERTENSION
     Dosage: 40MG PER DAY
     Route: 048
     Dates: start: 20060622, end: 20060704
  8. DIGOXIN [Concomitant]
     Indication: CARDIAC FAILURE
     Dosage: 1.25MG PER DAY
     Route: 048
     Dates: start: 20060622, end: 20060704
  9. HYDROXYZINE [Concomitant]
     Dosage: 45MG PER DAY
     Route: 048
     Dates: start: 20060622, end: 20060704
  10. KALIPOZ [Concomitant]
     Indication: SUPPLEMENTATION THERAPY
     Dosage: 16MG PER DAY
     Route: 048
     Dates: start: 20060622, end: 20060704

REACTIONS (6)
  - ANAPHYLACTIC SHOCK [None]
  - ANGIOEDEMA [None]
  - BLOOD PRESSURE DECREASED [None]
  - BRONCHOSPASM [None]
  - LOSS OF CONSCIOUSNESS [None]
  - RESPIRATORY ARREST [None]
